FAERS Safety Report 9183006 (Version 1)
Quarter: 2012Q4

REPORT INFORMATION
  Report Type: 
  Country: IT (occurrence: IT)
  Receive Date: 20121031
  Receipt Date: 20121031
  Transmission Date: 20130627
  Serious: Yes (Other)
  Sender: FDA-Public Use
  Company Number: PHHY2012IT098049

PATIENT
  Age: 48 None
  Sex: Female

DRUGS (4)
  1. TEGRETOL [Suspect]
     Dosage: 400 mg, daily
     Route: 048
     Dates: start: 20120801, end: 20120911
  2. LANSOPRAZOLE [Concomitant]
     Indication: ABDOMINAL PAIN UPPER
     Dosage: 15 mg, UNK
     Route: 048
     Dates: start: 20120801
  3. FEMARA [Concomitant]
     Indication: HORMONE THERAPY
     Dosage: 2.5 mg, UNK
     Route: 048
     Dates: start: 20110820
  4. EUTIROX [Concomitant]
     Indication: HYPOTHYROIDISM
     Dosage: 75 ug, UNK
     Route: 048
     Dates: start: 20020802

REACTIONS (5)
  - Oral candidiasis [Recovering/Resolving]
  - Erythema [Recovering/Resolving]
  - Rash maculo-papular [Recovering/Resolving]
  - Lymphopenia [Recovering/Resolving]
  - Eosinophilia [Recovering/Resolving]
